FAERS Safety Report 25544049 (Version 1)
Quarter: 2025Q3

REPORT INFORMATION
  Report Type: Spontaneous
  Country: US (occurrence: None)
  Receive Date: 20250703
  Receipt Date: 20250703
  Transmission Date: 20251020
  Serious: Yes (Other)
  Sender: FDA-CTU
  Company Number: None

PATIENT
  Age: 62 Year
  Sex: Female
  Weight: 51.3 kg

DRUGS (7)
  1. ESTROGENS\TESTOSTERONE [Suspect]
     Active Substance: ESTROGENS\TESTOSTERONE
     Indication: Hot flush
     Route: 058
     Dates: start: 20250623
  2. ESTROGENS\TESTOSTERONE [Suspect]
     Active Substance: ESTROGENS\TESTOSTERONE
     Indication: Mood altered
  3. ESTROGENS\TESTOSTERONE [Suspect]
     Active Substance: ESTROGENS\TESTOSTERONE
     Indication: Memory impairment
  4. ESTROGENS\TESTOSTERONE [Suspect]
     Active Substance: ESTROGENS\TESTOSTERONE
     Indication: Asthenia
  5. ESTROGENS\TESTOSTERONE [Suspect]
     Active Substance: ESTROGENS\TESTOSTERONE
     Indication: Arthropathy
  6. PROGESTERONE [Concomitant]
     Active Substance: PROGESTERONE
  7. IBUPROFEN [Concomitant]
     Active Substance: IBUPROFEN

REACTIONS (13)
  - Back pain [None]
  - Abdominal pain [None]
  - Gait disturbance [None]
  - Neck pain [None]
  - Oropharyngeal pain [None]
  - Bone pain [None]
  - Myalgia [None]
  - Headache [None]
  - Vision blurred [None]
  - Palpitations [None]
  - Fatigue [None]
  - Chills [None]
  - Hot flush [None]

NARRATIVE: CASE EVENT DATE: 20250623
